FAERS Safety Report 9234993 (Version 1)
Quarter: 2013Q2

REPORT INFORMATION
  Report Type: Report from Study
  Country: US (occurrence: US)
  Receive Date: 20130416
  Receipt Date: 20130416
  Transmission Date: 20140414
  Serious: No
  Sender: FDA-Public Use
  Company Number: US-VERTEX PHARMACEUTICALS INC.-2013-004839

PATIENT
  Age: 56 Year
  Sex: Female
  Weight: 60 kg

DRUGS (9)
  1. VX-950 (TELAPREVIR) [Suspect]
     Indication: HEPATITIS C
     Dosage: 750 MG, TID
     Route: 048
  2. PEGASYS [Suspect]
     Indication: HEPATITIS C
  3. RIBAVIRIN [Suspect]
     Indication: HEPATITIS C
     Dosage: 200 MG, UNK
  4. SYNTHROID [Concomitant]
     Dosage: 100 ?G, UNK
  5. ZIAC [Concomitant]
     Dosage: 2.5/ 6.25
  6. CITALOPRAM [Concomitant]
     Dosage: 10 MG, UNK
  7. VITAMIN D /00107901/ [Concomitant]
     Dosage: 1000 UT, UNK
  8. VITAMIN B 12 [Concomitant]
     Dosage: 1000 CR
  9. CALCIUM [Concomitant]
     Dosage: 500

REACTIONS (3)
  - Fatigue [Unknown]
  - Rash pruritic [Unknown]
  - White blood cell count decreased [Unknown]
